FAERS Safety Report 15094432 (Version 1)
Quarter: 2018Q2

REPORT INFORMATION
  Report Type: Spontaneous
  Country: FR (occurrence: BE)
  Receive Date: 20180630
  Receipt Date: 20180630
  Transmission Date: 20180711
  Serious: Yes (Hospitalization, Congenital Anomaly, Other)
  Sender: FDA-Public Use
  Company Number: FR-AUROBINDO-AUR-APL-2018-032978

PATIENT
  Sex: Female
  Weight: 2.21 kg

DRUGS (1)
  1. PARACETAMOL [Suspect]
     Active Substance: ACETAMINOPHEN
     Indication: MYALGIA
     Dosage: 1 GRAM, DAILY FOR 7 DAYS AT 34 WEEKS GESTATION
     Route: 064

REACTIONS (6)
  - Ventricular hypokinesia [Recovering/Resolving]
  - Cardiac ventricular disorder [Recovering/Resolving]
  - Foetal exposure during pregnancy [Recovering/Resolving]
  - Ventricular hypertrophy [Recovering/Resolving]
  - Ductus arteriosus premature closure [Recovering/Resolving]
  - Tricuspid valve incompetence [Recovering/Resolving]
